FAERS Safety Report 6773909-1 (Version None)
Quarter: 2010Q2

REPORT INFORMATION
  Report Type: 
  Country: None (occurrence: None)
  Receive Date: 20100615
  Receipt Date: 20100615
  Transmission Date: 20101027
  Serious: No
  Sender: FDA-Public Use
  Company Number: None

PATIENT
  Sex: Male
  Weight: 68.0396 kg

DRUGS (1)
  1. SYMBICORT [Suspect]
     Indication: CHRONIC OBSTRUCTIVE PULMONARY DISEASE
     Dosage: 2 PUFFS TWICE DAILY ORAL
     Route: 048

REACTIONS (14)
  - ABNORMAL DREAMS [None]
  - AGGRESSION [None]
  - COUGH [None]
  - DEPRESSION [None]
  - DYSPEPSIA [None]
  - DYSPHONIA [None]
  - INCREASED APPETITE [None]
  - INSOMNIA [None]
  - IRRITABILITY [None]
  - MUSCLE SPASMS [None]
  - NERVOUSNESS [None]
  - NIGHTMARE [None]
  - POOR QUALITY SLEEP [None]
  - TREMOR [None]
